FAERS Safety Report 17580316 (Version 1)
Quarter: 2020Q1

REPORT INFORMATION
  Report Type: Spontaneous
  Country: US (occurrence: US)
  Receive Date: 20200325
  Receipt Date: 20200325
  Transmission Date: 20200409
  Serious: Yes (Other)
  Sender: FDA-Public Use
  Company Number: None

PATIENT
  Age: 34 Year
  Sex: Female
  Weight: 94.5 kg

DRUGS (4)
  1. OXYCODONE 30MG [Suspect]
     Active Substance: OXYCODONE
     Indication: PAIN MANAGEMENT
     Dosage: ?          QUANTITY:1 TABLET(S);?
     Route: 048
     Dates: start: 20200322, end: 20200324
  2. VITAMIN C [Concomitant]
     Active Substance: ASCORBIC ACID
  3. VIT B-12 [Concomitant]
  4. VIT D/K [Concomitant]

REACTIONS (6)
  - Migraine [None]
  - Dizziness [None]
  - Insomnia [None]
  - Product substitution issue [None]
  - Drug ineffective [None]
  - Nausea [None]

NARRATIVE: CASE EVENT DATE: 20200322
